FAERS Safety Report 9879547 (Version 1)
Quarter: 2014Q1

REPORT INFORMATION
  Report Type: Spontaneous
  Country: TN (occurrence: TN)
  Receive Date: 20140206
  Receipt Date: 20140206
  Transmission Date: 20141002
  Serious: Yes (Other)
  Sender: FDA-Public Use
  Company Number: TN-WATSON-2014-01407

PATIENT
  Age: 17 Year
  Sex: Male

DRUGS (3)
  1. CIPROFLOXACIN HYDROCHLORIDE (UNKNOWN) [Suspect]
     Indication: LUNG DISORDER
     Dosage: 200 MG, DAILY
     Route: 065
  2. METHOTREXATE (UNKNOWN) [Interacting]
     Indication: ACUTE LYMPHOCYTIC LEUKAEMIA
     Dosage: 5 MG/M2, DAILY
     Route: 065
     Dates: start: 201202
  3. FOLINIC ACID [Concomitant]
     Indication: ACUTE LYMPHOCYTIC LEUKAEMIA
     Dosage: UNKNOWN
     Route: 065

REACTIONS (4)
  - Renal tubular disorder [Recovered/Resolved]
  - Chemotherapeutic drug level above therapeutic [Recovered/Resolved]
  - Vomiting [Recovered/Resolved]
  - Drug interaction [Recovered/Resolved]
